FAERS Safety Report 24721415 (Version 1)
Quarter: 2024Q4

REPORT INFORMATION
  Report Type: Other
  Country: CN (occurrence: CN)
  Receive Date: 20241211
  Receipt Date: 20241211
  Transmission Date: 20250115
  Serious: Yes (Other)
  Sender: BIONPHARMA INC.
  Company Number: CN-Bion-014507

PATIENT
  Sex: Male

DRUGS (2)
  1. METHIMAZOLE [Suspect]
     Active Substance: METHIMAZOLE
     Indication: Graves^ disease
  2. METHIMAZOLE [Suspect]
     Active Substance: METHIMAZOLE
     Indication: Abdominal infection

REACTIONS (2)
  - Neutropenia [Recovered/Resolved]
  - Plasmacytosis [Recovered/Resolved]
